FAERS Safety Report 23062194 (Version 1)
Quarter: 2023Q4

REPORT INFORMATION
  Report Type: Spontaneous
  Country: DE (occurrence: DE)
  Receive Date: 20231013
  Receipt Date: 20231013
  Transmission Date: 20240109
  Serious: Yes (Other)
  Sender: FDA-Public Use
  Company Number: None

PATIENT
  Sex: Male

DRUGS (2)
  1. RAMIPRIL [Suspect]
     Active Substance: RAMIPRIL
     Indication: Blood pressure increased
  2. RAMIPRIL [Suspect]
     Active Substance: RAMIPRIL
     Indication: Arrhythmia

REACTIONS (3)
  - Muscle rupture [Unknown]
  - Loss of personal independence in daily activities [Unknown]
  - Tendon rupture [Unknown]
